FAERS Safety Report 12430493 (Version 1)
Quarter: 2016Q2

REPORT INFORMATION
  Report Type: Spontaneous
  Country: US (occurrence: US)
  Receive Date: 20160602
  Receipt Date: 20160602
  Transmission Date: 20160815
  Serious: No
  Sender: FDA-Public Use
  Company Number: ALCN2014US006267

PATIENT
  Sex: Female

DRUGS (2)
  1. TEARS NATURALE FREE [Suspect]
     Active Substance: DEXTRAN 70\HYPROMELLOSE 2910 (4000 MPA.S)
     Indication: MEIBOMIAN GLAND DYSFUNCTION
     Route: 047
  2. TEARS NATURALE FREE [Suspect]
     Active Substance: DEXTRAN 70\HYPROMELLOSE 2910 (4000 MPA.S)
     Indication: OFF LABEL USE

REACTIONS (1)
  - Off label use [Recovered/Resolved]
